FAERS Safety Report 7038450-X (Version None)
Quarter: 2010Q4

REPORT INFORMATION
  Report Type: 
  Country: None (occurrence: None)
  Receive Date: 20101011
  Receipt Date: 20100423
  Transmission Date: 20110411
  Serious: No
  Sender: FDA-Public Use
  Company Number: US-PFIZER INC-2010042094

PATIENT
  Sex: Female
  Weight: 50.794 kg

DRUGS (7)
  1. GABAPENTIN [Suspect]
     Indication: HOT FLUSH
     Dosage: 300 MG, 3X/DAY
  2. PREMPRO [Suspect]
     Indication: HOT FLUSH
     Dosage: 0.625 MG, 1X/DAY
  3. PREMPRO [Suspect]
     Indication: NIGHT SWEATS
  4. PREMPRO [Suspect]
     Indication: OSTEOPENIA
  5. AZULFIDINE [Concomitant]
     Indication: CROHN'S DISEASE
     Dosage: UNK
  6. AZATHIOPRINE [Concomitant]
     Indication: CROHN'S DISEASE
     Dosage: UNK
  7. LIPITOR [Concomitant]
     Indication: VASCULAR OPERATION
     Dosage: UNK

REACTIONS (4)
  - BLOOD OESTROGEN DECREASED [None]
  - BREAST CYST [None]
  - DRUG INEFFECTIVE [None]
  - HOT FLUSH [None]
